FAERS Safety Report 5220403-5 (Version None)
Quarter: 2007Q1

REPORT INFORMATION
  Report Type: 
  Country: None (occurrence: None)
  Receive Date: 20061201
  Receipt Date: 20060713
  Transmission Date: 20070707
  Serious: No
  Sender: FDA-Public Use
  Company Number: 2006PV017475

PATIENT
  Age: 66 Year
  Sex: Male

DRUGS (7)
  1. BYETTA [Suspect]
     Indication: DRUG USE FOR UNKNOWN INDICATION
     Dosage: 10 UNITS;BID;SC
     Route: 058
     Dates: start: 20060401
  2. AMARYL [Concomitant]
  3. FUROSEMIDE [Concomitant]
  4. ZARAOXOLYN [Concomitant]
  5. ACTOS /USA/ [Concomitant]
  6. METFORMIN HCL [Concomitant]
  7. HUMULIN N [Concomitant]

REACTIONS (4)
  - BLOOD GLUCOSE DECREASED [None]
  - BLOOD GLUCOSE INCREASED [None]
  - DIARRHOEA [None]
  - SOMNOLENCE [None]
